FAERS Safety Report 6684492-3 (Version None)
Quarter: 2010Q2

REPORT INFORMATION
  Report Type: 
  Country: None (occurrence: None)
  Receive Date: 20100416
  Receipt Date: 20100412
  Transmission Date: 20101027
  Serious: Yes (Life-Threatening, Hospitalization)
  Sender: FDA-Public Use
  Company Number: DE-NAPPMUNDI-DEU-2010-0006144

PATIENT
  Age: 28 Year
  Sex: Female
  Weight: 69 kg

DRUGS (3)
  1. OXYCODONE HCL [Suspect]
     Indication: SCIATICA
     Dosage: 20 MG, BID
     Route: 048
     Dates: start: 20090918, end: 20091201
  2. TRANCOLONG [Suspect]
     Indication: SCIATICA
     Dosage: UNK
     Route: 048
     Dates: start: 20090918, end: 20091201
  3. BELLA HEXAL [Concomitant]

REACTIONS (1)
  - ACUTE HEPATIC FAILURE [None]
